FAERS Safety Report 6814533-1 (Version None)
Quarter: 2010Q2

REPORT INFORMATION
  Report Type: 
  Country: None (occurrence: None)
  Receive Date: 20100629
  Receipt Date: 20100616
  Transmission Date: 20101027
  Serious: Yes (Death, Life-Threatening, Hospitalization, Other)
  Sender: FDA-Public Use
  Company Number: POMP-1000663

PATIENT
  Age: 23 Month
  Sex: Female
  Weight: 11.8 kg

DRUGS (1)
  1. MYOZYME [Suspect]
     Indication: GLYCOGEN STORAGE DISEASE TYPE II
     Dosage: 20 MG/KG, Q2W, INTRAVENOUS
     Route: 042
     Dates: start: 20080117

REACTIONS (20)
  - BACTERIAL TRACHEITIS [None]
  - BRONCHITIS VIRAL [None]
  - COLLAPSE OF LUNG [None]
  - DEMYELINATION [None]
  - DISEASE COMPLICATION [None]
  - DYSMYELINATION [None]
  - DYSSTASIA [None]
  - ELECTROCARDIOGRAM ST SEGMENT DEPRESSION [None]
  - FATIGUE [None]
  - GLYCOGEN STORAGE DISEASE TYPE II [None]
  - HYPERCAPNIA [None]
  - HYPOTONIA [None]
  - MUSCLE ATROPHY [None]
  - MUSCULAR WEAKNESS [None]
  - NEUROPATHY PERIPHERAL [None]
  - PSEUDOMONAS INFECTION [None]
  - RESPIRATORY DISTRESS [None]
  - RESPIRATORY FAILURE [None]
  - TRACHEITIS [None]
  - VOMITING [None]
